APPROVED DRUG PRODUCT: CLONAZEPAM
Active Ingredient: CLONAZEPAM
Strength: 2MG
Dosage Form/Route: TABLET;ORAL
Application: A077147 | Product #003 | TE Code: AB
Applicant: ACCORD HEALTHCARE INC
Approved: May 2, 2005 | RLD: No | RS: No | Type: RX